FAERS Safety Report 8595789-4 (Version None)
Quarter: 2012Q3

REPORT INFORMATION
  Report Type: 
  Country: None (occurrence: None)
  Receive Date: 20120815
  Receipt Date: 20120731
  Transmission Date: 20120928
  Serious: Yes (Hospitalization)
  Sender: FDA-Public Use
  Company Number: KR-ROCHE-1083316

PATIENT
  Sex: Female
  Weight: 47.9 kg

DRUGS (73)
  1. HERCEPTIN [Suspect]
     Indication: BREAST CANCER
     Dosage: DATE OF LAST DOSE PRIOR TO SAE: 14/JUN/2012
     Route: 042
     Dates: start: 20120329
  2. PALONOSETRON [Concomitant]
     Indication: NAUSEA
     Route: 042
     Dates: start: 20120329
  3. CHLORPHENIRAMINE MALEATE [Concomitant]
     Route: 042
     Dates: start: 20120329
  4. IRCODON [Concomitant]
     Indication: PAIN
     Route: 048
     Dates: start: 20120329
  5. LOPERAMIDE [Concomitant]
     Indication: DIARRHOEA
     Route: 048
     Dates: start: 20120412
  6. LEVOFLOXACIN [Concomitant]
     Indication: OROPHARYNGEAL PAIN
     Route: 042
     Dates: start: 20120602, end: 20120603
  7. LEVOFLOXACIN [Concomitant]
     Route: 048
     Dates: end: 20120629
  8. POTASSIUM CHLORIDE [Concomitant]
     Dosage: AMPULE
     Route: 042
     Dates: start: 20120701
  9. SPIRONOLACTONE [Concomitant]
     Indication: OEDEMA
     Route: 048
     Dates: start: 20120614
  10. MEROPENEM [Concomitant]
     Indication: MUCOSAL INFLAMMATION
  11. NYSTATIN [Concomitant]
     Indication: STOMATITIS
     Dates: start: 20120630
  12. CALCIUM GLUCONATE [Concomitant]
     Indication: HYPOCALCAEMIA
     Route: 042
     Dates: start: 20120701
  13. ALGINATE SODIUM [Concomitant]
     Indication: PAIN
     Route: 048
     Dates: start: 20120602
  14. CISPLATIN [Suspect]
     Indication: BREAST CANCER
     Dosage: DATE OF LAST DOSE PRIOR TO SAE: 14/JUN/2012
     Route: 042
     Dates: start: 20120329
  15. MANNITOL [Concomitant]
     Route: 042
     Dates: start: 20120329
  16. METOCLOPRAMIDE [Concomitant]
     Indication: NAUSEA
     Route: 048
     Dates: start: 20120405
  17. FUROSEMIDE [Concomitant]
     Route: 042
     Dates: start: 20120628, end: 20120628
  18. GYNOBETADINE [Concomitant]
     Indication: VAGINAL INFECTION
     Dates: start: 20120628
  19. MEPERIDINE HCL [Concomitant]
     Indication: PAIN
     Route: 042
     Dates: start: 20120630, end: 20120630
  20. PERTUZUMAB [Suspect]
     Indication: BREAST CANCER
     Dosage: DATE OF LAST DOSE PRIOR TO SAE: 14/JUN/2012
     Route: 042
     Dates: start: 20120329
  21. CHLORHEXIDINE GLUCONATE [Concomitant]
     Indication: STOMATITIS
     Dates: start: 20120416
  22. MEGESTROL ACETATE [Concomitant]
     Indication: DECREASED APPETITE
     Route: 048
     Dates: start: 20120510
  23. FENTANYL [Concomitant]
     Indication: PAIN
     Dates: start: 20120628
  24. FAMOTIDINE [Concomitant]
     Indication: PAIN
     Route: 042
     Dates: start: 20120630
  25. POTASSIUM DIHYDROGEN PHOSPHATE [Concomitant]
     Route: 042
     Dates: start: 20120630
  26. KETOROLAC [Concomitant]
     Indication: PAIN
     Route: 042
     Dates: start: 20120702
  27. DEXAMETHASONE [Concomitant]
     Route: 042
     Dates: start: 20120329
  28. PANTOPRAZOLE [Concomitant]
     Indication: PAIN
     Route: 048
     Dates: start: 20120412
  29. ALBUMINAR-20 [Concomitant]
     Route: 042
     Dates: start: 20120614, end: 20120614
  30. MEROPENEM [Concomitant]
     Indication: FEBRILE NEUTROPENIA
     Route: 042
     Dates: start: 20120629
  31. OXYTETRACYCLINE HCL [Concomitant]
     Indication: PALMAR-PLANTAR ERYTHRODYSAESTHESIA SYNDROME
     Dates: start: 20120630
  32. POLYMYXIN B SULFATE [Concomitant]
     Indication: PALMAR-PLANTAR ERYTHRODYSAESTHESIA SYNDROME
     Dates: start: 20120630
  33. NOREPINEPHRINE [Concomitant]
     Route: 042
     Dates: start: 20120630
  34. TETRACOSACTRIN [Concomitant]
     Route: 042
     Dates: start: 20120630, end: 20120630
  35. XELODA [Suspect]
     Indication: BREAST CANCER
     Dosage: DATE OF LAST DOSE PRIOR TO SAE: 28/JUN/2012
     Route: 048
     Dates: start: 20120329
  36. ALMAGATE [Concomitant]
     Indication: PAIN
     Dosage: DOSE 1 AND DOSE UNIT: OTHER
     Route: 048
     Dates: start: 20120322
  37. CALCIUM PANTOTHENATE/CYANOCOBALAMIN/NICOTINAMIDE/PYRIDOXINE HYDROCHLOR [Concomitant]
     Dosage: DOSE UNIT: 1
     Route: 048
     Dates: start: 20120322
  38. APREPITANT [Concomitant]
     Indication: NAUSEA
     Route: 048
     Dates: start: 20120329
  39. APREPITANT [Concomitant]
     Route: 048
     Dates: start: 20120330
  40. ACETAMINOPHEN [Concomitant]
     Route: 048
     Dates: start: 20120329
  41. POVIDONE IODINE [Concomitant]
     Indication: STOMATITIS
     Dates: start: 20120412
  42. PANTOPRAZOLE [Concomitant]
     Route: 042
     Dates: start: 20120603
  43. PANTOPRAZOLE [Concomitant]
     Route: 042
     Dates: start: 20120629, end: 20120629
  44. MORPHINE SULFATE [Concomitant]
     Route: 042
     Dates: start: 20120702
  45. METRONIDAZOLE [Concomitant]
     Route: 048
     Dates: end: 20120610
  46. LEVOFLOXACIN [Concomitant]
     Indication: VAGINAL INFECTION
     Route: 042
     Dates: start: 20120628, end: 20120628
  47. ESOMEPRAZOLE [Concomitant]
     Indication: PAIN
     Route: 048
     Dates: start: 20120604, end: 20120610
  48. ALBUMINAR-20 [Concomitant]
     Indication: HYPOALBUMINAEMIA
     Route: 042
     Dates: start: 20120607, end: 20120607
  49. ALBUMINAR-20 [Concomitant]
     Route: 042
     Dates: start: 20120628
  50. CALCIUM CITRATE WITH VITAMIN D3 [Concomitant]
     Indication: HYPOCALCAEMIA
     Route: 048
     Dates: start: 20120607, end: 20120628
  51. AMBROXOL [Concomitant]
     Route: 048
     Dates: start: 20120628, end: 20120629
  52. ONDANSETRON [Concomitant]
     Indication: NAUSEA
     Route: 042
     Dates: start: 20120629, end: 20120629
  53. DRIED FERROUS SULFATE [Concomitant]
     Indication: ANAEMIA
     Dosage: DOSE: 1
     Route: 048
     Dates: start: 20120322
  54. DEXAMETHASONE [Concomitant]
     Route: 048
     Dates: start: 20120330
  55. MAGNESIUM SULFATE [Concomitant]
     Route: 042
     Dates: start: 20120418
  56. MORPHINE SULFATE [Concomitant]
     Indication: PAIN
     Route: 042
     Dates: start: 20120602
  57. METOCLOPRAMIDE [Concomitant]
     Route: 042
     Dates: start: 20120602, end: 20120602
  58. AMBROXOL [Concomitant]
     Indication: COUGH
     Route: 048
     Dates: start: 20120603, end: 20120613
  59. FILGRASTIM [Concomitant]
     Indication: FEBRILE NEUTROPENIA
     Route: 042
     Dates: start: 20120629
  60. NICOTINAMIDE/PYRIDOXINE HYDROCHLORIDE/RIBOFLAVIN/THIAMINE HYDROCHLORID [Concomitant]
     Dosage: DOSE UNIT: 1
     Route: 048
     Dates: start: 20120322
  61. IRCODON [Concomitant]
     Route: 048
     Dates: start: 20120405
  62. POVIDONE IODINE [Concomitant]
     Dates: start: 20120417
  63. MUPIROCIN [Concomitant]
     Indication: PALMAR-PLANTAR ERYTHRODYSAESTHESIA SYNDROME
     Dates: start: 20120422
  64. METRONIDAZOLE [Concomitant]
     Indication: FEBRILE NEUTROPENIA
     Route: 042
     Dates: start: 20120603, end: 20120604
  65. LEVOFLOXACIN [Concomitant]
     Indication: STOMATITIS
     Route: 048
     Dates: start: 20120604, end: 20120617
  66. ONDANSETRON [Concomitant]
     Indication: VOMITING
  67. COMBIFLEX (UNK INGREDIENTS) [Concomitant]
     Route: 042
     Dates: start: 20120702
  68. METRONIDAZOLE [Concomitant]
     Indication: MUCOSAL INFLAMMATION
     Route: 048
     Dates: start: 20120602
  69. METRONIDAZOLE [Concomitant]
     Route: 042
     Dates: start: 20120629
  70. POTASSIUM CHLORIDE [Concomitant]
     Indication: HYPOCALCAEMIA
     Route: 048
     Dates: start: 20120607, end: 20120613
  71. FUROSEMIDE [Concomitant]
     Indication: OEDEMA
     Route: 048
     Dates: start: 20120614, end: 20120614
  72. MORPHINE HCL [Concomitant]
     Indication: PAIN
     Route: 042
     Dates: start: 20120628
  73. SODIUM BICARBONATE [Concomitant]
     Indication: HYPONATRAEMIA
     Route: 042
     Dates: start: 20120630

REACTIONS (2)
  - MUCOSAL INFLAMMATION [None]
  - FEBRILE NEUTROPENIA [None]
